FAERS Safety Report 20902997 (Version 1)
Quarter: 2022Q2

REPORT INFORMATION
  Report Type: Spontaneous
  Country: US (occurrence: US)
  Receive Date: 20220601
  Receipt Date: 20220601
  Transmission Date: 20220720
  Serious: Yes (Other)
  Sender: FDA-Public Use
  Company Number: US-SHIONOGI INC.-2022000444

PATIENT
  Age: 50 Year
  Sex: Male

DRUGS (24)
  1. FETROJA [Suspect]
     Active Substance: CEFIDEROCOL SULFATE TOSYLATE
     Indication: Bacterial infection
     Dosage: UNK UNK, TID (DAY 30 TO DAY 49)
     Route: 042
  2. FETROJA [Suspect]
     Active Substance: CEFIDEROCOL SULFATE TOSYLATE
     Indication: Pneumonia acinetobacter
     Dosage: 2 G TID ( DAY 54 TO DAY 60)
     Route: 042
  3. FETROJA [Suspect]
     Active Substance: CEFIDEROCOL SULFATE TOSYLATE
     Indication: Empyema
  4. PIPERACILLIN SODIUM\TAZOBACTAM SODIUM [Concomitant]
     Active Substance: PIPERACILLIN SODIUM\TAZOBACTAM SODIUM
     Indication: Empyema
     Dosage: 4.5 G, 8 HOUR
     Route: 042
  5. PIPERACILLIN SODIUM\TAZOBACTAM SODIUM [Concomitant]
     Active Substance: PIPERACILLIN SODIUM\TAZOBACTAM SODIUM
     Indication: Bacterial infection
  6. PIPERACILLIN SODIUM\TAZOBACTAM SODIUM [Concomitant]
     Active Substance: PIPERACILLIN SODIUM\TAZOBACTAM SODIUM
     Indication: Pneumonia acinetobacter
  7. VANCOMYCIN [Concomitant]
     Active Substance: VANCOMYCIN
     Indication: Bacterial infection
     Dosage: UNKOWN
     Route: 042
  8. VANCOMYCIN [Concomitant]
     Active Substance: VANCOMYCIN
     Indication: Pneumonia acinetobacter
  9. VANCOMYCIN [Concomitant]
     Active Substance: VANCOMYCIN
     Indication: Empyema
  10. MEROPENEM [Concomitant]
     Active Substance: MEROPENEM
     Indication: Bacterial infection
     Dosage: 1 G, 8 HOUR
     Route: 042
  11. MEROPENEM [Concomitant]
     Active Substance: MEROPENEM
     Indication: Pneumonia acinetobacter
     Dosage: 1 UNK, 6 HOUR
     Route: 042
  12. MEROPENEM [Concomitant]
     Active Substance: MEROPENEM
     Indication: Empyema
  13. TIGECYCLINE [Concomitant]
     Active Substance: TIGECYCLINE
     Indication: Bacterial infection
     Dosage: 100 G, 12 HOUR
     Route: 042
  14. TIGECYCLINE [Concomitant]
     Active Substance: TIGECYCLINE
     Indication: Pneumonia acinetobacter
     Dosage: 100 MG
     Route: 042
  15. TIGECYCLINE [Concomitant]
     Active Substance: TIGECYCLINE
     Indication: Empyema
  16. COLISTIN [Concomitant]
     Active Substance: COLISTIN
     Indication: Bacterial infection
     Dosage: 150 MG, 12 HOUR
     Route: 042
  17. COLISTIN [Concomitant]
     Active Substance: COLISTIN
     Indication: Pneumonia acinetobacter
  18. COLISTIN [Concomitant]
     Active Substance: COLISTIN
     Indication: Empyema
  19. ERAVACYCLINE [Concomitant]
     Active Substance: ERAVACYCLINE
     Indication: Bacterial infection
     Dosage: 100 MG, 12 HOUR
     Route: 042
  20. ERAVACYCLINE [Concomitant]
     Active Substance: ERAVACYCLINE
     Indication: Pneumonia acinetobacter
  21. ERAVACYCLINE [Concomitant]
     Active Substance: ERAVACYCLINE
     Indication: Empyema
  22. SULBACTAM [Concomitant]
     Active Substance: SULBACTAM
     Indication: Bacterial infection
  23. SULBACTAM [Concomitant]
     Active Substance: SULBACTAM
     Indication: Pneumonia acinetobacter
  24. SULBACTAM [Concomitant]
     Active Substance: SULBACTAM
     Indication: Empyema

REACTIONS (3)
  - Pathogen resistance [Unknown]
  - Drug resistance [Unknown]
  - Off label use [Unknown]
